FAERS Safety Report 16070076 (Version 1)
Quarter: 2019Q1

REPORT INFORMATION
  Report Type: Spontaneous
  Country: JP (occurrence: JP)
  Receive Date: 20190314
  Receipt Date: 20190314
  Transmission Date: 20190418
  Serious: Yes (Other)
  Sender: FDA-Public Use
  Company Number: JP-ABBVIE-19P-087-2704053-00

PATIENT
  Age: 14 Year
  Sex: Male

DRUGS (1)
  1. LEUPLIN [Suspect]
     Active Substance: LEUPROLIDE ACETATE
     Indication: PRECOCIOUS PUBERTY
     Dosage: UNK, Q4WEEKS
     Route: 058
     Dates: start: 20190223

REACTIONS (1)
  - Shock symptom [Recovered/Resolved]

NARRATIVE: CASE EVENT DATE: 20190223
